FAERS Safety Report 18547557 (Version 1)
Quarter: 2020Q4

REPORT INFORMATION
  Report Type: Spontaneous
  Country: US (occurrence: US)
  Receive Date: 20201126
  Receipt Date: 20201126
  Transmission Date: 20210114
  Serious: Yes (Death)
  Sender: FDA-Public Use
  Company Number: US-ROCHE-2700973

PATIENT
  Age: 63 Year
  Sex: Female
  Weight: 38.59 kg

DRUGS (2)
  1. XELODA [Suspect]
     Active Substance: CAPECITABINE
     Indication: PRODUCT USED FOR UNKNOWN INDICATION
     Route: 065
  2. TUKYSA [Suspect]
     Active Substance: TUCATINIB
     Indication: BREAST CANCER FEMALE
     Route: 065

REACTIONS (9)
  - Movement disorder [Unknown]
  - Aphonia [Unknown]
  - Illness [Unknown]
  - Death [Fatal]
  - Nausea [Unknown]
  - Eating disorder [Unknown]
  - Dysgeusia [Unknown]
  - Unevaluable event [Unknown]
  - Ill-defined disorder [Unknown]

NARRATIVE: CASE EVENT DATE: 20201028
